FAERS Safety Report 5492930-7 (Version None)
Quarter: 2007Q4

REPORT INFORMATION
  Report Type: 
  Country: None (occurrence: None)
  Receive Date: 20071023
  Receipt Date: 20071018
  Transmission Date: 20080405
  Serious: Yes (Death)
  Sender: FDA-Public Use
  Company Number: JP-AVENTIS-200712498JP

PATIENT
  Age: 72 Year
  Sex: Female
  Weight: 43 kg

DRUGS (9)
  1. TAXOTERE [Suspect]
     Indication: BREAST CANCER RECURRENT
     Route: 041
     Dates: start: 20070425, end: 20070606
  2. TAXOTERE [Suspect]
     Indication: METASTASES TO BONE
     Route: 041
     Dates: start: 20070425, end: 20070606
  3. ZOMETA [Concomitant]
     Indication: METASTASES TO BONE
     Route: 041
     Dates: start: 20070502, end: 20070613
  4. FEMARA [Concomitant]
     Indication: METASTASES TO BONE
     Route: 048
     Dates: start: 20070620, end: 20070626
  5. AROMASIN [Concomitant]
     Dates: start: 20060812, end: 20070606
  6. EURODIN                            /00401202/ [Concomitant]
     Indication: INSOMNIA
     Dates: start: 20060301, end: 20070626
  7. LANSOPRAZOLE [Concomitant]
     Indication: REFLUX OESOPHAGITIS
     Dates: start: 20060301, end: 20070626
  8. SEROTONE [Concomitant]
     Indication: PREMEDICATION
     Dates: start: 20070425, end: 20070606
  9. DECADRON [Concomitant]
     Indication: PREMEDICATION
     Dates: start: 20070425, end: 20070606

REACTIONS (1)
  - INTERSTITIAL LUNG DISEASE [None]
